FAERS Safety Report 16056738 (Version 1)
Quarter: 2019Q2

REPORT INFORMATION
  Report Type: Spontaneous
  Country: US (occurrence: US)
  Receive Date: 20190310
  Receipt Date: 20190310
  Transmission Date: 20190711
  Serious: Yes (Hospitalization)
  Sender: FDA-Public Use
  Company Number: None

PATIENT
  Age: 88 Year
  Sex: Female
  Weight: 57 kg

DRUGS (7)
  1. ESCITALOPRAM [Suspect]
     Active Substance: ESCITALOPRAM OXALATE
     Indication: DEPRESSION
     Route: 048
  2. CEFDINIR. [Concomitant]
     Active Substance: CEFDINIR
  3. ESCITALOPRAM [Suspect]
     Active Substance: ESCITALOPRAM OXALATE
     Indication: ANXIETY
     Route: 048
  4. APIXABAN [Concomitant]
     Active Substance: APIXABAN
  5. CLONIDINE. [Concomitant]
     Active Substance: CLONIDINE
  6. AMLODIPINE [Concomitant]
     Active Substance: AMLODIPINE BESYLATE
  7. LOSARTAN. [Concomitant]
     Active Substance: LOSARTAN

REACTIONS (2)
  - Dry mouth [None]
  - Dysphagia [None]

NARRATIVE: CASE EVENT DATE: 20181212
